FAERS Safety Report 24085987 (Version 1)
Quarter: 2024Q3

REPORT INFORMATION
  Report Type: Spontaneous
  Country: GB (occurrence: GB)
  Receive Date: 20240712
  Receipt Date: 20240712
  Transmission Date: 20241016
  Serious: Yes (Other)
  Sender: TEVA
  Company Number: GB-MHRA-TPP22647113C9326668YC1720086920395

PATIENT
  Age: 74 Year
  Sex: Male
  Weight: 68 kg

DRUGS (10)
  1. TAMSULOSIN [Suspect]
     Active Substance: TAMSULOSIN
     Route: 065
     Dates: start: 20231205
  2. INDAPAMIDE [Concomitant]
     Active Substance: INDAPAMIDE
     Dates: start: 20230912
  3. HYLO FORTE [Concomitant]
     Dosage: 1 DROP, DURATION: 145 DAYS
     Dates: start: 20240208, end: 20240701
  4. COCODAMOL [Concomitant]
     Active Substance: ACETAMINOPHEN\CODEINE PHOSPHATE
     Dosage: 1-2 TABLET, DURATION: 15 DAYS
     Dates: start: 20240419, end: 20240503
  5. SODIUM HYALURONATE [Concomitant]
     Active Substance: HYALURONATE SODIUM
     Dosage: 1 DROP
     Dates: start: 20240702
  6. ATORVASTATIN [Concomitant]
     Active Substance: ATORVASTATIN
     Dates: start: 20230912
  7. MOMETASONE [Concomitant]
     Active Substance: MOMETASONE
     Dosage: 1-2 SPRAY
     Dates: start: 20221012
  8. OMEPRAZOLE [Concomitant]
     Active Substance: OMEPRAZOLE
     Dates: start: 20240222
  9. MACROGOL COMPOUND [Concomitant]
     Dosage: 1 SACHET
     Dates: start: 20220623
  10. RAMIPRIL [Concomitant]
     Active Substance: RAMIPRIL
     Dates: start: 20230912

REACTIONS (2)
  - Syncope [Unknown]
  - Dizziness [Recovered/Resolved]
